FAERS Safety Report 25483429 (Version 1)
Quarter: 2025Q2

REPORT INFORMATION
  Report Type: Spontaneous
  Country: US (occurrence: None)
  Receive Date: 20250625
  Receipt Date: 20250625
  Transmission Date: 20250716
  Serious: No
  Sender: FDA-CTU
  Company Number: None

PATIENT
  Age: 37 Year
  Sex: Female
  Weight: 60.75 kg

DRUGS (3)
  1. ALPHAGAN P [Suspect]
     Active Substance: BRIMONIDINE TARTRATE
     Indication: Intraocular pressure increased
     Dosage: OTHER QUANTITY : 1 DROP(S);?FREQUENCY : TWICE A DAY;?
     Route: 047
     Dates: start: 20250618, end: 20250621
  2. b12 [Concomitant]
  3. VITAMIN D3 [Concomitant]
     Active Substance: CHOLECALCIFEROL

REACTIONS (9)
  - Somnolence [None]
  - Nightmare [None]
  - Somnolence [None]
  - Fatigue [None]
  - Impaired work ability [None]
  - Fatigue [None]
  - Lethargy [None]
  - Dyspnoea [None]
  - Dissociation [None]

NARRATIVE: CASE EVENT DATE: 20250621
